FAERS Safety Report 9392390 (Version 1)
Quarter: 2013Q3

REPORT INFORMATION
  Report Type: Report from Study
  Country: CN (occurrence: CN)
  Receive Date: 20130710
  Receipt Date: 20130710
  Transmission Date: 20140515
  Serious: Yes (Death)
  Sender: FDA-Public Use
  Company Number: CN-ROCHE-1247161

PATIENT
  Sex: 0

DRUGS (11)
  1. MYCOPHENOLATE MOFETIL [Suspect]
     Indication: PROPHYLAXIS AGAINST TRANSPLANT REJECTION
     Route: 048
  2. MYCOPHENOLATE MOFETIL [Suspect]
     Route: 048
  3. PREDNISOLONE [Suspect]
     Indication: PROPHYLAXIS AGAINST TRANSPLANT REJECTION
     Route: 065
  4. PREDNISOLONE [Suspect]
     Route: 065
  5. PREDNISOLONE [Suspect]
     Route: 048
  6. PREDNISOLONE [Suspect]
     Route: 065
  7. PREDNISOLONE [Suspect]
     Route: 065
  8. CYCLOSPORINE [Suspect]
     Indication: PROPHYLAXIS AGAINST TRANSPLANT REJECTION
     Route: 065
  9. LAMIVUDINE [Concomitant]
     Route: 048
  10. ADEFOVIR [Concomitant]
     Route: 048
  11. HEPATITIS B IMMUNE GLOBULIN [Concomitant]
     Route: 030

REACTIONS (1)
  - Neoplasm recurrence [Fatal]
